FAERS Safety Report 24983568 (Version 1)
Quarter: 2025Q1

REPORT INFORMATION
  Report Type: Report from Study
  Country: IL (occurrence: IL)
  Receive Date: 20250219
  Receipt Date: 20250219
  Transmission Date: 20250409
  Serious: Yes (Other)
  Sender: ABBVIE
  Company Number: IL-ABBVIE-6135308

PATIENT
  Age: 75 Year
  Sex: Female

DRUGS (1)
  1. RINVOQ [Suspect]
     Active Substance: UPADACITINIB
     Indication: Crohn^s disease
     Dosage: FORM STRENGTH: 45 MILLIGRAM
     Route: 048
     Dates: start: 20250206

REACTIONS (1)
  - Rectal haemorrhage [Recovered/Resolved]

NARRATIVE: CASE EVENT DATE: 20250213
